FAERS Safety Report 23748179 (Version 1)
Quarter: 2024Q2

REPORT INFORMATION
  Report Type: Spontaneous
  Country: US (occurrence: None)
  Receive Date: 20240416
  Receipt Date: 20240416
  Transmission Date: 20240716
  Serious: Yes (Death)
  Sender: FDA-Public Use
  Company Number: None

PATIENT
  Age: 67 Year
  Sex: Male

DRUGS (11)
  1. REPATHA [Suspect]
     Active Substance: EVOLOCUMAB
     Indication: Blood cholesterol increased
     Dosage: 140 MG EVERY  2 WEEKS SUBCUTANOUS
     Route: 058
     Dates: start: 20231003, end: 20240412
  2. AMBIEN [Concomitant]
     Active Substance: ZOLPIDEM TARTRATE
  3. AZELASTINE [Concomitant]
     Active Substance: AZELASTINE\AZELASTINE HYDROCHLORIDE
  4. CENTRUM SILVER [Concomitant]
  5. CYCLOBENZAPRINE [Concomitant]
     Active Substance: CYCLOBENZAPRINE
  6. FLUTICASONE [Concomitant]
     Active Substance: FLUTICASONE
  7. LOSARTAN [Concomitant]
     Active Substance: LOSARTAN
  8. MONTELUKAST [Concomitant]
     Active Substance: MONTELUKAST SODIUM
  9. PEPCID [Concomitant]
     Active Substance: FAMOTIDINE
  10. PIRFENIDONE [Concomitant]
     Active Substance: PIRFENIDONE
  11. PLAVIX [Concomitant]

REACTIONS (1)
  - Death [None]

NARRATIVE: CASE EVENT DATE: 20240412
